FAERS Safety Report 10168082 (Version 2)
Quarter: 2014Q2

REPORT INFORMATION
  Report Type: Spontaneous
  Country: US (occurrence: US)
  Receive Date: 20140512
  Receipt Date: 20140623
  Transmission Date: 20141212
  Serious: Yes (Other)
  Sender: FDA-Public Use
  Company Number: US-BAYER-2014-067143

PATIENT
  Age: 23 Year
  Sex: Female
  Weight: 56.69 kg

DRUGS (7)
  1. MIRENA [Suspect]
     Indication: CONTRACEPTION
     Dosage: 20 MCG/24HR, CONT
     Route: 015
     Dates: start: 20080806
  2. MIRENA [Suspect]
     Indication: CONTRACEPTION
     Dosage: 20 MCG/24HR, CONT
     Route: 015
     Dates: start: 20090612
  3. BUSPAR [Concomitant]
  4. VICODIN [Concomitant]
  5. DOXYCYCLINE [Concomitant]
  6. FLAGYL [Concomitant]
  7. BACTRIM DS [Concomitant]

REACTIONS (13)
  - Device dislocation [None]
  - Pelvic pain [None]
  - Groin pain [None]
  - Injury [None]
  - Pain [None]
  - Emotional distress [None]
  - Device use error [None]
  - Abdominal pain [None]
  - Back pain [None]
  - Lymphadenopathy [None]
  - Scar [None]
  - Depression [None]
  - Device issue [None]
